FAERS Safety Report 15307659 (Version 2)
Quarter: 2018Q3

REPORT INFORMATION
  Report Type: Spontaneous
  Country: US (occurrence: US)
  Receive Date: 20180822
  Receipt Date: 20180907
  Transmission Date: 20181010
  Serious: Yes (Hospitalization)
  Sender: FDA-Public Use
  Company Number: US-VIFOR (INTERNATIONAL) INC.-VIT-2018-08143

PATIENT
  Age: 70 Year
  Sex: Male
  Weight: 149.82 kg

DRUGS (11)
  1. ALLOPURINOL. [Concomitant]
     Active Substance: ALLOPURINOL
  2. XARELTO [Concomitant]
     Active Substance: RIVAROXABAN
  3. CALCITRIOL. [Concomitant]
     Active Substance: CALCITRIOL
  4. VITAMIN B12 [Concomitant]
     Active Substance: CYANOCOBALAMIN
  5. BUMETANIDE. [Concomitant]
     Active Substance: BUMETANIDE
  6. VITAMIN D2 [Concomitant]
     Active Substance: ERGOCALCIFEROL
  7. VELTASSA [Suspect]
     Active Substance: PATIROMER
     Indication: HYPERKALAEMIA
     Route: 048
     Dates: start: 20160603
  8. METOPROLOL TARTRATE. [Concomitant]
     Active Substance: METOPROLOL TARTRATE
  9. GLIMEPIRIDE. [Concomitant]
     Active Substance: GLIMEPIRIDE
  10. FOLIC ACID. [Concomitant]
     Active Substance: FOLIC ACID
  11. LACTULOSE. [Concomitant]
     Active Substance: LACTULOSE

REACTIONS (1)
  - Coronary artery occlusion [Unknown]

NARRATIVE: CASE EVENT DATE: 20180810
